FAERS Safety Report 14260101 (Version 1)
Quarter: 2017Q4

REPORT INFORMATION
  Report Type: Spontaneous
  Country: US (occurrence: US)
  Receive Date: 20171207
  Receipt Date: 20171207
  Transmission Date: 20180321
  Serious: Yes (Hospitalization, Other)
  Sender: FDA-Public Use
  Company Number: US-CELGENEUS-USA-20171110209

PATIENT
  Age: 68 Year
  Sex: Female

DRUGS (1)
  1. THALOMID [Suspect]
     Active Substance: THALIDOMIDE
     Indication: PLASMA CELL MYELOMA
     Dosage: 200 MILLIGRAM
     Route: 048
     Dates: start: 20171107

REACTIONS (7)
  - Neutropenic colitis [Recovered/Resolved]
  - Febrile neutropenia [Unknown]
  - Pleural effusion [Unknown]
  - Influenza [Unknown]
  - Pneumonia [Unknown]
  - Pancytopenia [Recovering/Resolving]
  - Parotitis [Recovering/Resolving]

NARRATIVE: CASE EVENT DATE: 20171114
